FAERS Safety Report 8965762 (Version 1)
Quarter: 2012Q4

REPORT INFORMATION
  Report Type: 
  Country: US (occurrence: US)
  Receive Date: 20121217
  Receipt Date: 20121217
  Transmission Date: 20130627
  Serious: Yes (Other)
  Sender: FDA-Public Use
  Company Number: US-PFIZER INC-2012316614

PATIENT
  Age: 90 Year
  Sex: Male
  Weight: 74.38 kg

DRUGS (4)
  1. LEVOFLOXACIN [Suspect]
     Indication: COLITIS
     Dosage: 750 mg, 1x/day
     Dates: start: 20121129, end: 20121203
  2. METRONIDAZOLE [Suspect]
     Indication: DIARRHEA
     Dosage: UNK
     Route: 065
  3. SYNTHROID [Concomitant]
     Dosage: UNK
     Route: 065
  4. OMEPRAZOLE [Concomitant]
     Dosage: UNK
     Route: 065

REACTIONS (6)
  - Gait disturbance [Recovering/Resolving]
  - Urine output decreased [Recovering/Resolving]
  - Joint swelling [Recovering/Resolving]
  - Nausea [Recovering/Resolving]
  - Dizziness [Recovering/Resolving]
  - Headache [Recovering/Resolving]
